FAERS Safety Report 4959182-5 (Version None)
Quarter: 2006Q1

REPORT INFORMATION
  Report Type: 
  Country: None (occurrence: None)
  Receive Date: 20060330
  Receipt Date: 20060330
  Transmission Date: 20060701
  Serious: Yes (Death)
  Sender: FDA-Public Use
  Company Number: None

PATIENT
  Age: 14 Year
  Sex: Male
  Weight: 90.7194 kg

DRUGS (2)
  1. DEXTROAMPHETAMINE 10 MG TABLET BARR [Suspect]
     Indication: ATTENTION DEFICIT/HYPERACTIVITY DISORDER
     Dosage: 10 MG BID -MORNING , NOON PO
     Route: 048
     Dates: start: 20030101, end: 20051205
  2. TRAZODONE [Suspect]
     Dosage: QHS PO
     Route: 048

REACTIONS (2)
  - ARRHYTHMIA [None]
  - CIRCULATORY COLLAPSE [None]
